FAERS Safety Report 9689085 (Version 2)
Quarter: 2014Q1

REPORT INFORMATION
  Report Type: Spontaneous
  Country: FR (occurrence: FR)
  Receive Date: 20131114
  Receipt Date: 20140307
  Transmission Date: 20141002
  Serious: Yes (Hospitalization)
  Sender: FDA-Public Use
  Company Number: FR-VERTEX PHARMACEUTICALS INC-2013-011066

PATIENT
  Age: 49 Year
  Sex: Male

DRUGS (8)
  1. INCIVO [Suspect]
     Indication: CHRONIC HEPATITIS C
     Dosage: 2250 MG, QD
     Route: 048
     Dates: start: 20130311, end: 20130530
  2. PEGINTERFERON ALFA 2A [Suspect]
     Indication: CHRONIC HEPATITIS C
     Dosage: 180 ?G, QW
     Route: 058
     Dates: start: 20130311, end: 20130719
  3. RIBAVIRIN [Suspect]
     Indication: CHRONIC HEPATITIS C
     Dosage: 1200 MG, QD
     Route: 048
     Dates: start: 20130311, end: 20130719
  4. TRUVADA [Concomitant]
     Indication: HIV INFECTION
     Dosage: 1 DF, QD
     Route: 048
     Dates: start: 20130211
  5. ISENTRESS [Concomitant]
     Indication: HIV INFECTION
     Route: 048
     Dates: start: 20130211
  6. LEVOCARNIL [Concomitant]
     Indication: HYPOVITAMINOSIS
     Dosage: DOSAGE FORM: AMPOULES
     Route: 048
     Dates: start: 20130311
  7. NEORECORMON [Concomitant]
     Indication: HEPATITIS C
     Dosage: 30000 IU, QW
     Route: 058
     Dates: start: 20130408
  8. SEROPLEX [Concomitant]
     Indication: ANXIETY
     Dosage: 10 MG, QD
     Route: 048
     Dates: start: 20120425

REACTIONS (3)
  - Cellulitis staphylococcal [Unknown]
  - Sepsis [Unknown]
  - Off label use [Recovered/Resolved]
